FAERS Safety Report 18366137 (Version 1)
Quarter: 2020Q4

REPORT INFORMATION
  Report Type: Spontaneous
  Country: DE (occurrence: DE)
  Receive Date: 20201009
  Receipt Date: 20201009
  Transmission Date: 20210114
  Serious: Yes (Other)
  Sender: FDA-Public Use
  Company Number: DE-ASTRAZENECA-2020SF28674

PATIENT
  Age: 74 Year

DRUGS (8)
  1. ACETYLSALICYLIC ACID [Concomitant]
     Active Substance: ASPIRIN
     Dosage: 100 0-1-0
     Route: 065
  2. TOREM [Concomitant]
     Active Substance: TORSEMIDE
     Dosage: 10 1/2-0-0 (NEW SINCE 1 YEAR)
     Route: 065
  3. BRILIQUE [Suspect]
     Active Substance: TICAGRELOR
     Indication: HYPERTENSION
     Route: 048
  4. INSPRA [Concomitant]
     Active Substance: EPLERENONE
     Dosage: 50 1-0-0 NEW
     Route: 065
     Dates: start: 202005
  5. CANDESARTAN. [Concomitant]
     Active Substance: CANDESARTAN
     Dosage: 160 1-0-1
     Route: 065
  6. BISOPROLOL [Concomitant]
     Active Substance: BISOPROLOL
     Dosage: 5 MG 1/2-0-0
     Route: 065
  7. TOREM [Concomitant]
     Active Substance: TORSEMIDE
     Dosage: 10MG 1-0-0
     Route: 065
     Dates: start: 202005
  8. AMLODIPINE [Concomitant]
     Active Substance: AMLODIPINE BESYLATE
     Dosage: 5 1-0-0
     Route: 065

REACTIONS (7)
  - Ejection fraction decreased [Unknown]
  - Cardiac failure [Unknown]
  - Ventricular hypokinesia [Unknown]
  - Glycosylated haemoglobin increased [Unknown]
  - Sinus bradycardia [Unknown]
  - Mitral valve incompetence [Unknown]
  - Atrial natriuretic peptide increased [Recovering/Resolving]
